FAERS Safety Report 8135590-9 (Version None)
Quarter: 2012Q1

REPORT INFORMATION
  Report Type: 
  Country: None (occurrence: None)
  Receive Date: 20120214
  Receipt Date: 20120207
  Transmission Date: 20120608
  Serious: Yes (Hospitalization)
  Sender: FDA-Public Use
  Company Number: JP-ALLERGAN-1201391US

PATIENT
  Age: 71 Year
  Sex: Female

DRUGS (9)
  1. ODOMEL [Concomitant]
     Dosage: UNK
     Dates: start: 20110929, end: 20111212
  2. ACTOS [Concomitant]
  3. EVISTA [Concomitant]
  4. LUMIGAN [Suspect]
     Indication: NORMAL TENSION GLAUCOMA
     Dosage: 1 GTT, UNK
     Route: 047
     Dates: start: 20110929
  5. ALDACTONE [Concomitant]
  6. PRAVASTATIN [Concomitant]
  7. GATIFLOXACIN [Suspect]
     Indication: ANTIBIOTIC PROPHYLAXIS
     Dosage: 6 GTT, TID
     Route: 047
     Dates: start: 20110929, end: 20111212
  8. NITROGLYCERIN [Concomitant]
  9. NORVASC [Concomitant]

REACTIONS (1)
  - OSTEOARTHRITIS [None]
